FAERS Safety Report 4713839-X (Version None)
Quarter: 2005Q3

REPORT INFORMATION
  Report Type: 
  Country: None (occurrence: None)
  Receive Date: 20050712
  Receipt Date: 20050627
  Transmission Date: 20060218
  Serious: Yes (Hospitalization, Other)
  Sender: FDA-Public Use
  Company Number: 215656

PATIENT
  Age: 70 Year
  Sex: Male
  Weight: 102 kg

DRUGS (10)
  1. RITUXAN [Suspect]
     Indication: CENTRAL NERVOUS SYSTEM LYMPHOMA
     Dosage: 750 MG, INTRAVENOUS
     Route: 042
     Dates: start: 20031226, end: 20031226
  2. METHOTREXATE [Suspect]
     Indication: CENTRAL NERVOUS SYSTEM LYMPHOMA
     Dosage: 7G, INTRAVENOUS
     Route: 042
     Dates: start: 20031229, end: 20031229
  3. LEUCOVORIN CALCIUM [Concomitant]
  4. HYZAAR [Concomitant]
  5. DECADRON [Concomitant]
  6. DILANTIN [Concomitant]
  7. ACYCLOVIR [Concomitant]
  8. BACTRIM DS [Concomitant]
  9. COMPAZINE [Concomitant]
  10. HYDROCODONE BITARTRATE [Concomitant]

REACTIONS (5)
  - FEBRILE NEUTROPENIA [None]
  - HAEMODIALYSIS [None]
  - PANCYTOPENIA [None]
  - RENAL FAILURE ACUTE [None]
  - URINARY TRACT INFECTION [None]
